FAERS Safety Report 5713704-5 (Version None)
Quarter: 2008Q2

REPORT INFORMATION
  Report Type: 
  Country: None (occurrence: None)
  Receive Date: 20080418
  Receipt Date: 20080402
  Transmission Date: 20081010
  Serious: Yes (Hospitalization)
  Sender: FDA-Public Use
  Company Number: ENT 2008-0015

PATIENT
  Age: 73 Year
  Sex: Female

DRUGS (10)
  1. COMTAN [Suspect]
     Indication: PARKINSON'S DISEASE
     Dosage: 300 MG
     Dates: start: 20071128, end: 20080109
  2. MENESIT [Suspect]
     Dosage: 500 MG
     Dates: start: 20030126
  3. PLETAL [Concomitant]
  4. POLARAMINE [Concomitant]
  5. CARBIDOPA AND LEVODOPA [Concomitant]
  6. LAC B [Concomitant]
  7. SELBEX [Concomitant]
  8. PANTOSIN [Concomitant]
  9. NAUZELIN [Concomitant]
  10. TPN [Concomitant]

REACTIONS (3)
  - CONSTIPATION [None]
  - REGURGITATION [None]
  - VOMITING [None]
